FAERS Safety Report 9232883 (Version 2)
Quarter: 2013Q2

REPORT INFORMATION
  Report Type: Spontaneous
  Country: US (occurrence: None)
  Receive Date: 20121031
  Receipt Date: 20130107
  Transmission Date: 20140414
  Serious: Yes (Other)
  Sender: FDA-Public Use
  Company Number: PHEH2012US015535

PATIENT
  Age: 32 Year
  Sex: Female

DRUGS (4)
  1. GILENYA [Suspect]
     Indication: MULTIPLE SCLEROSIS
     Route: 048
  2. ALBUTEROL (SALBUTAMOL) [Concomitant]
  3. CLARITIN (LORATADINE) [Concomitant]
  4. FISH OIL (FISH OIL) [Concomitant]

REACTIONS (3)
  - Depression [None]
  - Anxiety [None]
  - Suicidal ideation [None]
